FAERS Safety Report 5570140-2 (Version None)
Quarter: 2007Q4

REPORT INFORMATION
  Report Type: 
  Country: None (occurrence: None)
  Receive Date: 20071217
  Receipt Date: 20071210
  Transmission Date: 20080405
  Serious: Yes (Life-Threatening, Hospitalization)
  Sender: FDA-Public Use
  Company Number: 2007SP022522

PATIENT
  Sex: Male
  Weight: 120 kg

DRUGS (3)
  1. PEG-INTRON [Suspect]
     Indication: HEPATITIS C
     Dosage: 150 MCG; QW;
     Dates: start: 20071005, end: 20071102
  2. REBETOL [Suspect]
     Indication: HEPATITIS C
     Dosage: 1200 MG; QD;
     Dates: start: 20071005, end: 20071030
  3. GELOCATIL (CON.) [Concomitant]

REACTIONS (1)
  - ACUTE RESPIRATORY FAILURE [None]
